FAERS Safety Report 25265169 (Version 1)
Quarter: 2025Q2

REPORT INFORMATION
  Report Type: Report from Study
  Country: US (occurrence: US)
  Receive Date: 20250502
  Receipt Date: 20250502
  Transmission Date: 20250717
  Serious: Yes (Hospitalization)
  Sender: pharmaAND
  Company Number: US-Pharmaand-2025000197

PATIENT
  Sex: Female

DRUGS (1)
  1. RUBRACA [Suspect]
     Active Substance: RUCAPARIB CAMSYLATE
     Indication: Ovarian cancer
     Dosage: 800 MG, 1X/DAY
     Route: 048

REACTIONS (13)
  - Dehydration [Unknown]
  - Pruritus [Unknown]
  - Nausea [Unknown]
  - Fatigue [Unknown]
  - Full blood count decreased [Unknown]
  - Limb discomfort [Unknown]
  - Decreased appetite [Unknown]
  - Constipation [Unknown]
  - Anxiety [Unknown]
  - Memory impairment [Unknown]
  - Insomnia [Unknown]
  - Epistaxis [Unknown]
  - Gingival bleeding [Unknown]
